FAERS Safety Report 17647838 (Version 1)
Quarter: 2020Q2

REPORT INFORMATION
  Report Type: Spontaneous
  Country: JP (occurrence: JP)
  Receive Date: 20200408
  Receipt Date: 20200408
  Transmission Date: 20200713
  Serious: Yes (Death, Hospitalization, Other)
  Sender: FDA-Public Use
  Company Number: JP-009507513-2002JPN000470J

PATIENT
  Weight: 56 kg

DRUGS (3)
  1. KEYTRUDA [Suspect]
     Active Substance: PEMBROLIZUMAB
     Indication: NON-SMALL CELL LUNG CANCER
     Dosage: 200 MILLIGRAM, Q3W
     Route: 041
     Dates: start: 20191031, end: 20191212
  2. CISPLATIN. [Concomitant]
     Active Substance: CISPLATIN
     Indication: NON-SMALL CELL LUNG CANCER
     Dosage: 75 MILLIGRAM/SQ. METER, Q3W
     Route: 041
     Dates: start: 20191031, end: 20191212
  3. PEMETREXED DISODIUM [Concomitant]
     Active Substance: PEMETREXED DISODIUM
     Indication: NON-SMALL CELL LUNG CANCER
     Dosage: 500 MILLIGRAM/SQ. METER, Q3W
     Route: 041
     Dates: start: 20191031, end: 20191212

REACTIONS (6)
  - Decreased appetite [Unknown]
  - Malignant neoplasm progression [Fatal]
  - White blood cell count decreased [Recovering/Resolving]
  - Acute kidney injury [Fatal]
  - Febrile neutropenia [Unknown]
  - Physical deconditioning [Unknown]

NARRATIVE: CASE EVENT DATE: 2019
